FAERS Safety Report 6025964-4 (Version None)
Quarter: 2009Q1

REPORT INFORMATION
  Report Type: 
  Country: None (occurrence: None)
  Receive Date: 20090102
  Receipt Date: 20081224
  Transmission Date: 20090719
  Serious: Yes (Other)
  Sender: FDA-Public Use
  Company Number: GB-BRISTOL-MYERS SQUIBB COMPANY-14415772

PATIENT
  Age: 42 Year
  Sex: Male

DRUGS (1)
  1. SINEMET [Suspect]
     Indication: DYSTONIA
     Route: 048

REACTIONS (3)
  - ABORTION SPONTANEOUS [None]
  - PATERNAL DRUGS AFFECTING FOETUS [None]
  - PREGNANCY [None]
